FAERS Safety Report 4853836-7 (Version None)
Quarter: 2005Q4

REPORT INFORMATION
  Report Type: 
  Country: None (occurrence: None)
  Receive Date: 20051213
  Receipt Date: 20051208
  Transmission Date: 20060501
  Serious: Yes (Hospitalization)
  Sender: FDA-Public Use
  Company Number: US-2004-029794

PATIENT
  Age: 56 Year
  Sex: Female
  Weight: 78 kg

DRUGS (7)
  1. CLIMARA [Suspect]
     Indication: HORMONE REPLACEMENT THERAPY
     Dosage: 0.05 MG, CONT; TRANSDERMAL
     Route: 062
     Dates: start: 19970701, end: 19980101
  2. PREMARIN [Suspect]
     Indication: HORMONE REPLACEMENT THERAPY
     Dates: start: 19970101, end: 19990101
  3. VIVELLE [Suspect]
     Indication: HORMONE REPLACEMENT THERAPY
     Dosage: 0.05 MG,
     Dates: start: 19960617
  4. PREMPRO [Suspect]
     Indication: HORMONE REPLACEMENT THERAPY
     Dates: end: 19960616
  5. ESTRACE [Suspect]
     Indication: HORMONE REPLACEMENT THERAPY
     Dosage: 1 MG, 1X/DAY,
     Dates: start: 19970101, end: 19970701
  6. AUGMENTAN ORAL (CLAVULANATE POTASSIUM, AMOXICILLIN TRIHYDRATE) [Concomitant]
  7. BELLAMINE S (BELLADONNA ALKALOIDS, PHENOBARBITAL) [Concomitant]

REACTIONS (15)
  - ATRIAL HYPERTROPHY [None]
  - AUTONOMIC NERVOUS SYSTEM IMBALANCE [None]
  - BREAST CANCER IN SITU [None]
  - BREAST MICROCALCIFICATION [None]
  - DIZZINESS [None]
  - ELECTROCARDIOGRAM ST-T CHANGE [None]
  - FAT NECROSIS [None]
  - FIBROCYSTIC BREAST DISEASE [None]
  - POSTOPERATIVE THROMBOSIS [None]
  - RADIATION SKIN INJURY [None]
  - SCAR [None]
  - TUBERCULIN TEST POSITIVE [None]
  - UTERINE LEIOMYOMA [None]
  - UTERINE PROLAPSE [None]
  - WEIGHT INCREASED [None]
